FAERS Safety Report 7531712-9 (Version None)
Quarter: 2011Q2

REPORT INFORMATION
  Report Type: 
  Country: None (occurrence: None)
  Receive Date: 20110601
  Receipt Date: 20110520
  Transmission Date: 20111010
  Serious: Yes (Death, Other)
  Sender: FDA-Public Use
  Company Number: GER/UKI/11/0018312

PATIENT
  Age: 77 Year
  Sex: Male

DRUGS (7)
  1. ASPIRIN [Suspect]
     Indication: PRODUCT USED FOR UNKNOWN INDICATION
     Dosage: ORAL
     Route: 048
  2. ESOMEPRAZOLE MAGNESIUM [Concomitant]
  3. BENDROFLUAZIDE [Concomitant]
  4. RAMIPRIL [Concomitant]
  5. NAPROXEN [Suspect]
     Indication: PRODUCT USED FOR UNKNOWN INDICATION
     Dosage: ORAL
     Route: 048
  6. LUCENTIS [Suspect]
     Indication: AGE-RELATED MACULAR DEGENERATION
     Dates: start: 20090129
  7. SIMVASTATIN [Concomitant]

REACTIONS (4)
  - HAEMATEMESIS [None]
  - CEREBROVASCULAR ACCIDENT [None]
  - URINARY TRACT INFECTION [None]
  - TRANSIENT ISCHAEMIC ATTACK [None]
